FAERS Safety Report 6095959-3 (Version None)
Quarter: 2009Q1

REPORT INFORMATION
  Report Type: 
  Country: None (occurrence: None)
  Receive Date: 20090227
  Receipt Date: 20080724
  Transmission Date: 20090719
  Serious: No
  Sender: FDA-Public Use
  Company Number: A0739219A

PATIENT
  Age: 45 Year
  Sex: Female

DRUGS (4)
  1. LAMICTAL [Suspect]
     Indication: BIPOLAR DISORDER
     Dosage: 150MG PER DAY
     Route: 048
     Dates: start: 20080501
  2. LITHIUM [Suspect]
     Dosage: 600MG PER DAY
     Dates: start: 20000101, end: 20080714
  3. ATENOLOL [Concomitant]
  4. GEODON [Concomitant]

REACTIONS (7)
  - BLOOD PRESSURE INCREASED [None]
  - GAIT DISTURBANCE [None]
  - HYPOAESTHESIA [None]
  - OEDEMA PERIPHERAL [None]
  - RASH [None]
  - RHINORRHOEA [None]
  - SWOLLEN TONGUE [None]
